FAERS Safety Report 14780132 (Version 1)
Quarter: 2018Q2

REPORT INFORMATION
  Report Type: Report from Study
  Country: US (occurrence: US)
  Receive Date: 20180419
  Receipt Date: 20180419
  Transmission Date: 20180711
  Serious: Yes (Other)
  Sender: FDA-Public Use
  Company Number: US-TEVA-2018-US-882649

PATIENT
  Age: 88 Year

DRUGS (2)
  1. RITUXIMAB. [Suspect]
     Active Substance: RITUXIMAB
     Indication: HAEMATOLOGICAL MALIGNANCY
     Route: 065
  2. BENDAMUSTINE [Suspect]
     Active Substance: BENDAMUSTINE
     Indication: HAEMATOLOGICAL MALIGNANCY
     Route: 065

REACTIONS (1)
  - Cardiomyopathy [Unknown]
